FAERS Safety Report 5972934-8 (Version None)
Quarter: 2008Q4

REPORT INFORMATION
  Report Type: 
  Country: None (occurrence: None)
  Receive Date: 20081201
  Receipt Date: 20081121
  Transmission Date: 20090506
  Serious: Yes (Other)
  Sender: FDA-Public Use
  Company Number: PHHY2008DE29666

PATIENT
  Sex: Female

DRUGS (1)
  1. LDT600 LDT+ [Suspect]
     Indication: HEPATITIS B
     Dosage: 600 MG, QD

REACTIONS (2)
  - ALOPECIA [None]
  - DEPRESSION [None]
